FAERS Safety Report 24705429 (Version 1)
Quarter: 2024Q4

REPORT INFORMATION
  Report Type: Spontaneous
  Country: US (occurrence: US)
  Receive Date: 20241206
  Receipt Date: 20241206
  Transmission Date: 20250115
  Serious: Yes (Hospitalization, Other)
  Sender: HIKMA
  Company Number: US-MLMSERVICE-20241119-PI263281-00128-1

PATIENT
  Age: 39 Year
  Sex: Female

DRUGS (3)
  1. DOXORUBICIN [Suspect]
     Active Substance: DOXORUBICIN
     Indication: Malignant fibrous histiocytoma
     Dosage: UNK
     Route: 065
  2. IFOSFAMIDE [Suspect]
     Active Substance: IFOSFAMIDE
     Indication: Malignant fibrous histiocytoma
     Dosage: UNK
     Route: 065
  3. MESNA [Suspect]
     Active Substance: MESNA
     Indication: Malignant fibrous histiocytoma
     Dosage: UNK
     Route: 065

REACTIONS (4)
  - Tachypnoea [Unknown]
  - Renal impairment [Unknown]
  - Metabolic acidosis [Unknown]
  - Staphylococcal bacteraemia [Unknown]
